FAERS Safety Report 5755168-1 (Version None)
Quarter: 2008Q2

REPORT INFORMATION
  Report Type: 
  Country: None (occurrence: None)
  Receive Date: 20080528
  Receipt Date: 20080520
  Transmission Date: 20081010
  Serious: Yes (Death, Hospitalization)
  Sender: FDA-Public Use
  Company Number: 163-21880-08020999

PATIENT
  Age: 82 Year
  Sex: Female

DRUGS (1)
  1. REVLIMID [Suspect]
     Indication: MYELODYSPLASTIC SYNDROME
     Dosage: 10 MG, 1 IN 1 D, ORAL
     Route: 048
     Dates: start: 20080117, end: 20080101

REACTIONS (2)
  - PLATELET COUNT DECREASED [None]
  - PYREXIA [None]
